FAERS Safety Report 18170006 (Version 2)
Quarter: 2021Q3

REPORT INFORMATION
  Report Type: Spontaneous
  Country: CA (occurrence: CA)
  Receive Date: 20200819
  Receipt Date: 20210805
  Transmission Date: 20211014
  Serious: Yes (Hospitalization, Congenital Anomaly, Other)
  Sender: FDA-Public Use
  Company Number: CA-ACCORD-195822

PATIENT
  Age: 1 Year
  Sex: Male

DRUGS (11)
  1. DOXORUBICIN [Suspect]
     Active Substance: DOXORUBICIN
     Indication: PRODUCT USED FOR UNKNOWN INDICATION
     Dosage: DOXORUBICIN HYDROCHLORIDE INJECTION
     Route: 042
  2. DEXAMETHASONE. [Concomitant]
     Active Substance: DEXAMETHASONE
     Dosage: DOSAGE FORM: LIQUID INTRA? ARTICULAR
  3. ETOPOSIDE. [Suspect]
     Active Substance: ETOPOSIDE
     Indication: PRODUCT USED FOR UNKNOWN INDICATION
     Route: 042
  4. DOXORUBICIN [Suspect]
     Active Substance: DOXORUBICIN
     Indication: PRODUCT USED FOR UNKNOWN INDICATION
     Dosage: DOXORUBICIN HYDROCHLORIDE INJECTION
     Route: 042
  5. SULFAMETHOXAZOLE/TRIMETHOPRIM [Concomitant]
     Active Substance: SULFAMETHOXAZOLE\TRIMETHOPRIM
  6. CARBOPLATIN. [Suspect]
     Active Substance: CARBOPLATIN
     Indication: PRODUCT USED FOR UNKNOWN INDICATION
     Route: 042
  7. KETAMINE [Concomitant]
     Active Substance: KETAMINE
  8. CARBOPLATIN. [Suspect]
     Active Substance: CARBOPLATIN
     Indication: PRODUCT USED FOR UNKNOWN INDICATION
     Route: 042
  9. MORPHINE [Concomitant]
     Active Substance: MORPHINE
  10. ONDANSETRON [Concomitant]
     Active Substance: ONDANSETRON
  11. PIPERACILLIN/TAZOBACTAM [Concomitant]
     Active Substance: PIPERACILLIN SODIUM\TAZOBACTAM SODIUM
     Dosage: DOSAGE FORM: POWDER FOR SOLUTION INTRAVENOUS

REACTIONS (6)
  - Pyrexia [Unknown]
  - Hypoxia [Unknown]
  - Respiratory distress [Unknown]
  - Intensive care [Unknown]
  - Febrile neutropenia [Unknown]
  - Neutrophil count decreased [Unknown]
